FAERS Safety Report 17652094 (Version 1)
Quarter: 2020Q2

REPORT INFORMATION
  Report Type: Spontaneous
  Country: DE (occurrence: DE)
  Receive Date: 20200409
  Receipt Date: 20200409
  Transmission Date: 20200713
  Serious: Yes (Life-Threatening, Hospitalization)
  Sender: FDA-Public Use
  Company Number: DE-TEVA-2020-DE-1219442

PATIENT
  Age: 63 Year
  Sex: Female
  Weight: 93 kg

DRUGS (11)
  1. PREDNISOLONE. [Suspect]
     Active Substance: PREDNISOLONE
     Dosage: FOR 5 DAYS, FOLLOWED BY TAPER-OFF
     Route: 065
  2. COTRIMOXAZOLE [Concomitant]
     Active Substance: SULFAMETHOXAZOLE\TRIMETHOPRIM
     Indication: ESCHERICHIA INFECTION
  3. FUROSEMIDE. [Concomitant]
     Active Substance: FUROSEMIDE
     Dosage: FOR 4-WEEKS
     Route: 065
  4. METAMIZOLE [Concomitant]
     Active Substance: METAMIZOLE
     Indication: ANALGESIC THERAPY
     Dosage: ADMINISTERED AS NEEDED
     Route: 065
  5. LEFLUNOMIDE. [Suspect]
     Active Substance: LEFLUNOMIDE
     Indication: RHEUMATOID ARTHRITIS
     Dosage: FOR 6 YEARS
     Route: 065
  6. FOLIC ACID. [Concomitant]
     Active Substance: FOLIC ACID
     Indication: SUPPLEMENTATION THERAPY
     Dosage: ON THE DAY AFTER METHOTREXATE ADMINISTRATION FOR 8 YEARS
     Route: 065
  7. SIMVASTATIN. [Concomitant]
     Active Substance: SIMVASTATIN
     Indication: HYPERLIPIDAEMIA
     Route: 065
  8. METHOTREXATE. [Suspect]
     Active Substance: METHOTREXATE
     Indication: RHEUMATOID ARTHRITIS
     Dosage: FOR 8 YEARS
     Route: 065
  9. PANTOPRAZOLE [Concomitant]
     Active Substance: PANTOPRAZOLE
     Indication: CHRONIC GASTRITIS
     Route: 065
  10. COTRIMOXAZOLE [Concomitant]
     Active Substance: SULFAMETHOXAZOLE\TRIMETHOPRIM
     Indication: URINARY TRACT INFECTION BACTERIAL
     Dosage: SCHEDULED FOR OVER 4 DAYS
     Route: 065
  11. ACETAZOLAMIDE. [Suspect]
     Active Substance: ACETAZOLAMIDE
     Indication: METABOLIC ALKALOSIS
     Route: 065

REACTIONS (17)
  - Thrombotic microangiopathy [Recovered/Resolved]
  - Hypoalbuminaemia [Recovered/Resolved]
  - Acute kidney injury [Recovered/Resolved]
  - Acute hepatic failure [Recovered/Resolved]
  - Hypovolaemia [Recovered/Resolved]
  - Toxicity to various agents [Recovered/Resolved]
  - Ascites [Recovered/Resolved]
  - Drug ineffective [Unknown]
  - Hypokalaemia [Recovered/Resolved]
  - Hepatic cirrhosis [Recovered/Resolved]
  - Respiratory alkalosis [Recovered/Resolved]
  - Haemolysis [Recovered/Resolved]
  - Metabolic alkalosis [Recovered/Resolved]
  - Hepatosplenomegaly [Recovered/Resolved]
  - Drug-induced liver injury [Recovered/Resolved]
  - Hyperglycaemia [Recovered/Resolved]
  - Coagulopathy [Recovered/Resolved]
